FAERS Safety Report 6812520-0 (Version None)
Quarter: 2010Q3

REPORT INFORMATION
  Report Type: 
  Country: None (occurrence: None)
  Receive Date: 20100701
  Receipt Date: 20100622
  Transmission Date: 20110219
  Serious: Yes (Hospitalization, Other)
  Sender: FDA-Public Use
  Company Number: BR-ABBOTT-09P-020-0601970-00

PATIENT
  Sex: Female
  Weight: 80 kg

DRUGS (7)
  1. HUMIRA [Suspect]
     Indication: RHEUMATOID ARTHRITIS
     Route: 058
  2. SULFASALAZINE [Concomitant]
     Indication: RHEUMATOID ARTHRITIS
     Route: 048
  3. AMILORIDE HCL AND HYDROCHLOROTHIAZIDE [Concomitant]
     Indication: HYPERTENSION
     Route: 048
  4. DORZOLAMIDE HCL AND TIMOLOL MALEATE [Concomitant]
     Indication: GLAUCOMA
     Dosage: 2 DROPS A DAY
     Route: 047
  5. ALENDRONATE [Concomitant]
     Indication: BLOOD CALCIUM
     Route: 048
  6. ACETAMINOPHEN [Concomitant]
     Indication: PAIN
     Route: 048
  7. COSOPT [Concomitant]
     Indication: GLAUCOMA

REACTIONS (5)
  - ALOPECIA [None]
  - DACRYOSTENOSIS ACQUIRED [None]
  - EYE INFECTION [None]
  - PYREXIA [None]
  - UTERINE POLYP [None]
